FAERS Safety Report 16036478 (Version 1)
Quarter: 2019Q1

REPORT INFORMATION
  Report Type: Spontaneous
  Country: US (occurrence: US)
  Receive Date: 20190305
  Receipt Date: 20190305
  Transmission Date: 20190418
  Serious: No
  Sender: FDA-Public Use
  Company Number: US-ALLERGAN-1900025US

PATIENT
  Age: 81 Year
  Sex: Female
  Weight: 72.56 kg

DRUGS (5)
  1. METFORMIN [Concomitant]
     Active Substance: METFORMIN HYDROCHLORIDE
  2. ESTRACE [Suspect]
     Active Substance: ESTRADIOL
     Dosage: FINGER DIGIT SIZE
     Route: 067
     Dates: start: 201804, end: 201806
  3. PREMARIN [Concomitant]
     Active Substance: ESTROGENS, CONJUGATED
     Indication: HORMONE REPLACEMENT THERAPY
     Dosage: UNK
     Dates: end: 201804
  4. LEXAPRO [Concomitant]
     Active Substance: ESCITALOPRAM OXALATE
     Indication: ANXIETY
  5. ESTRACE [Suspect]
     Active Substance: ESTRADIOL
     Indication: HORMONE REPLACEMENT THERAPY
     Dosage: PEA SIZE AMOUNT
     Route: 067

REACTIONS (3)
  - Wrong technique in product usage process [Unknown]
  - Alopecia [Recovering/Resolving]
  - Nasopharyngitis [Not Recovered/Not Resolved]

NARRATIVE: CASE EVENT DATE: 201804
